FAERS Safety Report 5381217-9 (Version None)
Quarter: 2007Q3

REPORT INFORMATION
  Report Type: 
  Country: None (occurrence: None)
  Receive Date: 20070706
  Receipt Date: 20070626
  Transmission Date: 20080115
  Serious: Yes (Other)
  Sender: FDA-Public Use
  Company Number: DE-PFIZER INC-2007053158

PATIENT
  Age: 48 Year
  Sex: Female

DRUGS (6)
  1. LYRICA [Suspect]
     Indication: COMPLEX REGIONAL PAIN SYNDROME
     Route: 048
     Dates: start: 20070612, end: 20070622
  2. GABAPENTIN [Concomitant]
  3. SYMPAL [Concomitant]
  4. NEXIUM [Concomitant]
  5. GALACORDIN FORTE [Concomitant]
  6. ATACAND [Concomitant]

REACTIONS (11)
  - ABDOMINAL PAIN UPPER [None]
  - ARRHYTHMIA [None]
  - DIZZINESS [None]
  - DYSGEUSIA [None]
  - HEADACHE [None]
  - HYPERHIDROSIS [None]
  - MEMORY IMPAIRMENT [None]
  - NASOPHARYNGITIS [None]
  - NAUSEA [None]
  - NECK PAIN [None]
  - SLEEP DISORDER [None]
